FAERS Safety Report 4822209-5 (Version None)
Quarter: 2005Q4

REPORT INFORMATION
  Report Type: 
  Country: None (occurrence: None)
  Receive Date: 20051103
  Receipt Date: 20051019
  Transmission Date: 20060501
  Serious: Yes (Hospitalization, Other)
  Sender: FDA-Public Use
  Company Number: USA05010110694

PATIENT
  Age: 53 Year
  Sex: Female

DRUGS (3)
  1. PROZAC [Suspect]
     Indication: WEIGHT CONTROL
     Dosage: 20 MG
  2. PHENTERMINE [Concomitant]
  3. FENFLURAMINE W/PHENTERMINE [Concomitant]

REACTIONS (10)
  - AMNESIA [None]
  - ATTENTION DEFICIT/HYPERACTIVITY DISORDER [None]
  - BIPOLAR DISORDER [None]
  - DELUSION [None]
  - MENTAL DISORDER [None]
  - NARCOLEPSY [None]
  - PARANOIA [None]
  - SOMNOLENCE [None]
  - SUICIDE ATTEMPT [None]
  - WEIGHT INCREASED [None]
